FAERS Safety Report 23260698 (Version 1)
Quarter: 2023Q4

REPORT INFORMATION
  Report Type: Spontaneous
  Country: US (occurrence: US)
  Receive Date: 20231205
  Receipt Date: 20231205
  Transmission Date: 20240110
  Serious: No
  Sender: FDA-Public Use
  Company Number: US-BoehringerIngelheim-2023-BI-276145

PATIENT
  Sex: Female

DRUGS (3)
  1. JARDIANCE [Suspect]
     Active Substance: EMPAGLIFLOZIN
     Indication: Type 2 diabetes mellitus
     Dates: start: 2018
  2. OZEMPIC [Suspect]
     Active Substance: SEMAGLUTIDE
     Indication: Product used for unknown indication
     Dates: start: 2022
  3. Humulin Inuslin [Concomitant]
     Indication: Product used for unknown indication

REACTIONS (7)
  - Lung disorder [Unknown]
  - Tooth fracture [Not Recovered/Not Resolved]
  - Drug ineffective [Unknown]
  - Vulvovaginal mycotic infection [Unknown]
  - Dental caries [Unknown]
  - Nausea [Not Recovered/Not Resolved]
  - Abdominal distension [Not Recovered/Not Resolved]
